FAERS Safety Report 11663707 (Version 2)
Quarter: 2015Q4

REPORT INFORMATION
  Report Type: Report from Study
  Country: DE (occurrence: DE)
  Receive Date: 20151027
  Receipt Date: 20151103
  Transmission Date: 20160304
  Serious: Yes (Hospitalization)
  Sender: FDA-Public Use
  Company Number: DE-TEVA-603106GER

PATIENT
  Age: 66 Year
  Sex: Female
  Weight: 53 kg

DRUGS (6)
  1. TRASTUZUMAB [Suspect]
     Active Substance: TRASTUZUMAB
     Indication: BREAST CANCER FEMALE
     Dosage: LAST DOSE PRIOR TO SAE: 07-SEP-2015, DAY 1
     Route: 042
     Dates: start: 20150706
  2. L-THYROXIN [Concomitant]
     Active Substance: LEVOTHYROXINE SODIUM
     Dosage: 75 MICROGRAM DAILY;
     Dates: start: 2014
  3. MYOCET [Suspect]
     Active Substance: DOXORUBICIN
     Indication: BREAST CANCER FEMALE
     Dosage: LAST DOSE PRIOR TO SAE: 21-SEP-2015, DAY 1
     Route: 042
     Dates: start: 20150706
  4. PACLITAXEL. [Suspect]
     Active Substance: PACLITAXEL
     Indication: BREAST CANCER FEMALE
     Dosage: LAST DOSE PRIOR TO SAE: 21-SEP-2015, DAY 1
     Route: 042
     Dates: start: 20150706
  5. PERTUZUMAB [Suspect]
     Active Substance: PERTUZUMAB
     Indication: BREAST CANCER FEMALE
     Dosage: 20 MILLIGRAM DAILY; LAST DOSE PRIOR TO SAE: 07-SEP-2015, DAY 1
     Route: 042
     Dates: start: 20150706
  6. PANTOZOL [Concomitant]
     Active Substance: PANTOPRAZOLE SODIUM
     Dosage: 20 UNKNOWN DAILY;
     Dates: start: 201509

REACTIONS (1)
  - Transient psychosis [Recovering/Resolving]

NARRATIVE: CASE EVENT DATE: 20151013
